FAERS Safety Report 19786036 (Version 2)
Quarter: 2021Q3

REPORT INFORMATION
  Report Type: Spontaneous
  Country: FR (occurrence: FR)
  Receive Date: 20210903
  Receipt Date: 20210909
  Transmission Date: 20211014
  Serious: Yes (Life-Threatening, Hospitalization, Other)
  Sender: FDA-Public Use
  Company Number: FR-PFIZER INC-202101125760

PATIENT
  Age: 64 Year
  Sex: Female

DRUGS (1)
  1. METHOTREXATE SODIUM. [Suspect]
     Active Substance: METHOTREXATE SODIUM
     Indication: CENTRAL NERVOUS SYSTEM LYMPHOMA
     Dosage: 100 MG/M2 EVERY 2 WEEKS

REACTIONS (6)
  - Toxicity to various agents [Unknown]
  - Off label use [Unknown]
  - Sepsis [Recovering/Resolving]
  - Overdose [Unknown]
  - Anaemia [Unknown]
  - Mucosal inflammation [Unknown]
